FAERS Safety Report 17042978 (Version 1)
Quarter: 2019Q4

REPORT INFORMATION
  Report Type: Spontaneous
  Country: US (occurrence: US)
  Receive Date: 20191118
  Receipt Date: 20191118
  Transmission Date: 20200122
  Serious: No
  Sender: FDA-Public Use
  Company Number: US-JNJFOC-20191113293

PATIENT
  Age: 32 Year
  Sex: Female
  Weight: 72.64 kg

DRUGS (3)
  1. INVEGA SUSTENNA [Suspect]
     Active Substance: PALIPERIDONE PALMITATE
     Indication: DEPRESSION
  2. INVEGA SUSTENNA [Suspect]
     Active Substance: PALIPERIDONE PALMITATE
     Indication: BIPOLAR DISORDER
     Route: 030
     Dates: start: 20191007
  3. INVEGA SUSTENNA [Suspect]
     Active Substance: PALIPERIDONE PALMITATE
     Indication: ATTENTION DEFICIT/HYPERACTIVITY DISORDER

REACTIONS (3)
  - Off label use [Unknown]
  - Injection site mass [Not Recovered/Not Resolved]
  - Product use in unapproved indication [Unknown]

NARRATIVE: CASE EVENT DATE: 20191007
